FAERS Safety Report 9854788 (Version 2)
Quarter: 2016Q1

REPORT INFORMATION
  Report Type: Spontaneous
  Country: US (occurrence: US)
  Receive Date: 20140130
  Receipt Date: 20160219
  Transmission Date: 20160526
  Serious: No
  Sender: FDA-Public Use
  Company Number: US-PFIZER INC-2014026920

PATIENT
  Age: 69 Year
  Sex: Male

DRUGS (6)
  1. ALLOPURINOL. [Suspect]
     Active Substance: ALLOPURINOL
     Dosage: UNK
  2. NEURONTIN [Suspect]
     Active Substance: GABAPENTIN
     Dosage: UNK
  3. COLCHICINE. [Suspect]
     Active Substance: COLCHICINE
     Dosage: UNK
  4. INDOCIN [Suspect]
     Active Substance: INDOMETHACIN\INDOMETHACIN SODIUM
     Dosage: UNK
  5. VANCOMYCIN HCL [Suspect]
     Active Substance: VANCOMYCIN HYDROCHLORIDE
     Dosage: UNK
  6. COLBENEMID [Suspect]
     Active Substance: COLCHICINE\PROBENECID
     Dosage: UNK

REACTIONS (1)
  - Drug hypersensitivity [Unknown]
